FAERS Safety Report 8491051-9 (Version None)
Quarter: 2012Q2

REPORT INFORMATION
  Report Type: 
  Country: None (occurrence: None)
  Receive Date: 20120627
  Receipt Date: 20120619
  Transmission Date: 20120825
  Serious: Yes (Other)
  Sender: FDA-Public Use
  Company Number: JPI-P-022149

PATIENT
  Age: 56 Year
  Sex: Female

DRUGS (2)
  1. XYREM [Suspect]
     Indication: NARCOLEPSY
     Dosage: 4.5 GM (2.25 GM, 2 IN 1 D), ORAL; (UNKNOWN), ORAL; 9 GM (4.5 GM,2 IN 1 D), ORAL
     Route: 048
     Dates: start: 20060412
  2. XYREM [Suspect]
     Indication: NARCOLEPSY
     Dosage: 4.5 GM (2.25 GM, 2 IN 1 D), ORAL; (UNKNOWN), ORAL; 9 GM (4.5 GM,2 IN 1 D), ORAL
     Route: 048
     Dates: start: 20070418

REACTIONS (2)
  - ARTHRITIS [None]
  - RENAL CANCER [None]
